FAERS Safety Report 4582383-5 (Version None)
Quarter: 2005Q1

REPORT INFORMATION
  Report Type: 
  Country: None (occurrence: None)
  Receive Date: 20050119
  Receipt Date: 20040315
  Transmission Date: 20050727
  Serious: Yes (Life-Threatening, Hospitalization, Other)
  Sender: FDA-Public Use
  Company Number: US-JNJFOC-20040101537

PATIENT
  Age: 26 Year
  Sex: Female
  Weight: 49.4421 kg

DRUGS (7)
  1. DOXIL [Suspect]
     Indication: SARCOMA
     Dosage: 45 MG/M2, INTRAVENOUS
     Route: 042
     Dates: start: 20031230, end: 20031230
  2. EPINEPHRINE [Suspect]
     Indication: ANAPHYLACTIC REACTION
     Dosage: INTRAVENOUS
     Route: 042
     Dates: start: 20031230, end: 20031230
  3. ANZEMET ( ) DOLASETRON MESILATE [Concomitant]
  4. COUMADIN [Concomitant]
  5. OXYCONTIN [Concomitant]
  6. OXYCODONE (OXYCODONE) [Concomitant]
  7. LACTULOSE [Concomitant]

REACTIONS (4)
  - ANAPHYLACTIC REACTION [None]
  - CARDIO-RESPIRATORY ARREST [None]
  - VENTRICULAR FIBRILLATION [None]
  - VENTRICULAR TACHYCARDIA [None]
